FAERS Safety Report 14647754 (Version 1)
Quarter: 2018Q1

REPORT INFORMATION
  Report Type: Report from Study
  Country: ES (occurrence: ES)
  Receive Date: 20180316
  Receipt Date: 20180316
  Transmission Date: 20180509
  Serious: Yes (Hospitalization)
  Sender: FDA-Public Use
  Company Number: ES-PFIZER INC-2018103990

PATIENT
  Age: 3 Year
  Sex: Male

DRUGS (6)
  1. CEFEPIME HCL [Suspect]
     Active Substance: CEFEPIME HYDROCHLORIDE
     Indication: URINARY TRACT INFECTION
     Dosage: 625 MG, 3X/DAY (EVERY 8 HOURS)
     Route: 042
     Dates: start: 20170901, end: 20170906
  2. ZOVIRAX [Concomitant]
     Active Substance: ACYCLOVIR
     Indication: OPPORTUNISTIC INFECTION PROPHYLAXIS
     Dosage: 1.8 ML, 3X/DAY (EVERY 8 HOURS)
     Route: 048
     Dates: start: 201609
  3. DOXORUBICIN [Concomitant]
     Active Substance: DOXORUBICIN
     Indication: ACUTE LYMPHOCYTIC LEUKAEMIA
     Dosage: 16.5 MG, 1X/DAY
     Route: 042
     Dates: start: 20170823, end: 20170823
  4. AMIKACIN SULFATE. [Interacting]
     Active Substance: AMIKACIN SULFATE
     Indication: URINARY TRACT INFECTION
     Dosage: 250 MG, 1X/DAY
     Route: 042
     Dates: start: 20170901, end: 20170906
  5. SEPTRIN PAEDIATRIC [Concomitant]
     Active Substance: SULFAMETHOXAZOLE\TRIMETHOPRIM
     Indication: OPPORTUNISTIC INFECTION PROPHYLAXIS
     Dosage: 4 ML, 2X/DAY (EVERY 12 HOURS)
     Route: 048
     Dates: start: 201609
  6. VINCRISTINA SULFATO [Concomitant]
     Active Substance: VINCRISTINE SULFATE
     Indication: ACUTE LYMPHOCYTIC LEUKAEMIA
     Dosage: 0.8 MG, 1X/DAY
     Route: 042
     Dates: start: 20170823, end: 20170823

REACTIONS (2)
  - Clostridium difficile colitis [Recovered/Resolved]
  - Drug interaction [Unknown]

NARRATIVE: CASE EVENT DATE: 20170904
